FAERS Safety Report 25612539 (Version 1)
Quarter: 2025Q3

REPORT INFORMATION
  Report Type: Spontaneous
  Country: AU (occurrence: AU)
  Receive Date: 20250728
  Receipt Date: 20250728
  Transmission Date: 20251020
  Serious: Yes (Other)
  Sender: TAIHO ONCOLOGY INC
  Company Number: AU-SERVIER-S25010327

PATIENT
  Sex: Female

DRUGS (1)
  1. LONSURF [Suspect]
     Active Substance: TIPIRACIL HYDROCHLORIDE\TRIFLURIDINE
     Indication: Gastric cancer
     Route: 048

REACTIONS (3)
  - Malignant neoplasm progression [Unknown]
  - Metastasis [Unknown]
  - Malignant ascites [Unknown]
